FAERS Safety Report 7588912-1 (Version None)
Quarter: 2011Q3

REPORT INFORMATION
  Report Type: 
  Country: None (occurrence: None)
  Receive Date: 20110705
  Receipt Date: 20110620
  Transmission Date: 20111222
  Serious: Yes (Hospitalization)
  Sender: FDA-Public Use
  Company Number: ES-BAYER-2011-053496

PATIENT
  Age: 32 Year
  Sex: Male

DRUGS (4)
  1. ASCORBIC ACID [Suspect]
     Indication: INFLUENZA
     Dosage: 500-1000 MG/DAY
     Route: 048
  2. IBUPROFEN [Suspect]
     Indication: INFLUENZA
     Dosage: 600-1,200 MG/DAY
     Route: 048
  3. ACETAMINOPHEN [Suspect]
     Indication: INFLUENZA
     Dosage: 650-1300 MG/DAY
     Route: 048
  4. CODEINE [Suspect]
     Indication: INFLUENZA
     Dosage: 10-20 MG/DAY
     Route: 048

REACTIONS (3)
  - PRURITUS [None]
  - HEPATITIS CHOLESTATIC [None]
  - ABDOMINAL PAIN UPPER [None]
